FAERS Safety Report 22739582 (Version 2)
Quarter: 2024Q3

REPORT INFORMATION
  Report Type: Spontaneous
  Country: NL (occurrence: NL)
  Receive Date: 20230722
  Receipt Date: 20240820
  Transmission Date: 20241016
  Serious: Yes (Hospitalization)
  Sender: AUROBINDO
  Company Number: NL-LRB-00797602

PATIENT
  Age: 69 Year
  Sex: Male
  Weight: 98 kg

DRUGS (7)
  1. TERBINAFINE [Suspect]
     Active Substance: TERBINAFINE
     Indication: Product used for unknown indication
     Dosage: UNK
     Route: 065
  2. AMOXICILLIN\CLAVULANATE POTASSIUM [Suspect]
     Active Substance: AMOXICILLIN\CLAVULANATE POTASSIUM
     Indication: Product used for unknown indication
     Dosage: UNK
     Route: 065
  3. COVID-19 VACCINE NOS [Suspect]
     Active Substance: COVID-19 VACCINE
     Indication: COVID-19 immunisation
     Dosage: 1 DOSAGE FORM
     Route: 065
     Dates: start: 20211223
  4. APIXABAN [Concomitant]
     Active Substance: APIXABAN
     Indication: Product used for unknown indication
     Dosage: UNK
     Route: 065
  5. BISOPROLOL [Concomitant]
     Active Substance: BISOPROLOL\BISOPROLOL FUMARATE
     Indication: Product used for unknown indication
     Dosage: UNK
     Route: 065
  6. TELMISARTAN [Concomitant]
     Active Substance: TELMISARTAN
     Indication: Product used for unknown indication
     Dosage: UNK
     Route: 065
  7. OMEPRAZOLE [Suspect]
     Active Substance: OMEPRAZOLE
     Indication: Product used for unknown indication
     Dosage: UNK
     Route: 065

REACTIONS (1)
  - Henoch-Schonlein purpura [Recovering/Resolving]

NARRATIVE: CASE EVENT DATE: 20220210
